FAERS Safety Report 12985235 (Version 2)
Quarter: 2016Q4

REPORT INFORMATION
  Report Type: Report from Study
  Country: JP (occurrence: JP)
  Receive Date: 20161129
  Receipt Date: 20161212
  Transmission Date: 20170207
  Serious: Yes (Hospitalization, Other)
  Sender: FDA-Public Use
  Company Number: JP-BRISTOL-MYERS SQUIBB COMPANY-BMS-2016-100747

PATIENT
  Age: 66 Year
  Sex: Male
  Weight: 69 kg

DRUGS (7)
  1. ZYLORIC [Concomitant]
     Active Substance: ALLOPURINOL
     Indication: ADVERSE EVENT
     Dosage: UNK
     Route: 048
  2. APIXABAN [Suspect]
     Active Substance: APIXABAN
     Indication: CEREBROVASCULAR ACCIDENT PROPHYLAXIS
     Dosage: 5 MG, BID
     Route: 048
     Dates: start: 20160417
  3. UBRETID [Concomitant]
     Active Substance: DISTIGMINE BROMIDE
     Indication: ADVERSE EVENT
     Dosage: UNK
     Route: 048
  4. OLMETEC [Concomitant]
     Active Substance: OLMESARTAN MEDOXOMIL
     Indication: ADVERSE EVENT
     Dosage: UNK
     Route: 048
  5. ATELEC [Concomitant]
     Active Substance: CILNIDIPINE
     Indication: ADVERSE EVENT
     Dosage: UNK
     Route: 048
  6. URIEF [Concomitant]
     Active Substance: SILODOSIN
     Indication: ADVERSE EVENT
     Dosage: UNK
     Route: 048
  7. BEPRICOR [Concomitant]
     Active Substance: BEPRIDIL
     Indication: ADVERSE EVENT
     Dosage: UNK
     Route: 048
     Dates: start: 20141031

REACTIONS (2)
  - Benign prostatic hyperplasia [Recovered/Resolved]
  - Prostatic operation [Unknown]

NARRATIVE: CASE EVENT DATE: 20160607
